FAERS Safety Report 7079148-1 (Version None)
Quarter: 2010Q4

REPORT INFORMATION
  Report Type: 
  Country: None (occurrence: None)
  Receive Date: 20101102
  Receipt Date: 20101028
  Transmission Date: 20110411
  Serious: Yes (Other)
  Sender: FDA-Public Use
  Company Number: A0889334A

PATIENT
  Age: 3 Year
  Sex: Male

DRUGS (2)
  1. FLOVENT [Suspect]
     Route: 055
  2. QVAR 40 [Suspect]
     Indication: SEASONAL ALLERGY
     Dosage: 100MCG TWICE PER DAY
     Route: 055
     Dates: start: 20100927

REACTIONS (1)
  - AGGRESSION [None]
